FAERS Safety Report 21987284 (Version 1)
Quarter: 2023Q1

REPORT INFORMATION
  Report Type: Spontaneous
  Country: US (occurrence: US)
  Receive Date: 20230213
  Receipt Date: 20230213
  Transmission Date: 20230417
  Serious: No
  Sender: FDA-Public Use
  Company Number: US-BAUSCHBL-2023BNL000941

PATIENT
  Age: 91 Year
  Sex: Male

DRUGS (1)
  1. HYDROCORTISONE\NEOMYCIN SULFATE\POLYMYXIN B SULFATE [Suspect]
     Active Substance: HYDROCORTISONE\NEOMYCIN SULFATE\POLYMYXIN B SULFATE
     Indication: Ear inflammation
     Dosage: 10 DAYS
     Route: 001
     Dates: start: 20230203

REACTIONS (3)
  - Exposure via skin contact [Unknown]
  - Product delivery mechanism issue [Unknown]
  - No adverse event [Unknown]
